FAERS Safety Report 10070355 (Version 1)
Quarter: 2014Q2

REPORT INFORMATION
  Report Type: Spontaneous
  Country: FR (occurrence: FR)
  Receive Date: 20140410
  Receipt Date: 20140410
  Transmission Date: 20141212
  Serious: Yes (Hospitalization)
  Sender: FDA-Public Use
  Company Number: FR-PFIZER INC-2014096167

PATIENT
  Age: 69 Year
  Sex: Female

DRUGS (5)
  1. SUTENT [Suspect]
     Dosage: UNK
     Route: 048
     Dates: start: 201312, end: 20140113
  2. TENSTATEN [Concomitant]
     Dosage: UNK
  3. LEVOTHYROX [Concomitant]
     Dosage: UNK
  4. INEXIUM /01479302/ [Concomitant]
     Dosage: UNK
  5. AERIUS [Concomitant]
     Dosage: UNK

REACTIONS (5)
  - Thrombocytopenia [Recovered/Resolved]
  - Epistaxis [Recovered/Resolved]
  - Ecchymosis [Recovered/Resolved]
  - Diverticular perforation [Unknown]
  - Pelvic abscess [Unknown]
